FAERS Safety Report 5720352-X (Version None)
Quarter: 2008Q2

REPORT INFORMATION
  Report Type: 
  Country: None (occurrence: None)
  Receive Date: 20080423
  Receipt Date: 20070628
  Transmission Date: 20081010
  Serious: Yes (Other)
  Sender: FDA-Public Use
  Company Number: 242231

PATIENT

DRUGS (1)
  1. AVASTIN [Suspect]
     Indication: NON-SMALL CELL LUNG CANCER
     Dosage: 10 MG/KG, Q2W, INTRAVENOUS
     Route: 042

REACTIONS (3)
  - HAEMORRHAGE [None]
  - OESOPHAGEAL CARCINOMA [None]
  - TRACHEAL CANCER [None]
